FAERS Safety Report 7892955-8 (Version None)
Quarter: 2011Q4

REPORT INFORMATION
  Report Type: 
  Country: None (occurrence: None)
  Receive Date: 20111104
  Receipt Date: 20110915
  Transmission Date: 20120403
  Serious: No
  Sender: FDA-Public Use
  Company Number: US-MYLANLABS-2011S1019316

PATIENT
  Age: 56 Year
  Sex: Female
  Weight: 102.06 kg

DRUGS (2)
  1. SINGULAIR [Concomitant]
     Indication: MULTIPLE ALLERGIES
  2. PAROXETINE HCL [Suspect]
     Indication: BIPOLAR DISORDER
     Route: 048
     Dates: start: 20110829

REACTIONS (6)
  - DIZZINESS [None]
  - HEADACHE [None]
  - DRUG WITHDRAWAL SYNDROME [None]
  - HYPOAESTHESIA ORAL [None]
  - DRUG INEFFECTIVE FOR UNAPPROVED INDICATION [None]
  - DEPRESSED MOOD [None]
